FAERS Safety Report 11988559 (Version 1)
Quarter: 2016Q1

REPORT INFORMATION
  Report Type: Spontaneous
  Country: US (occurrence: US)
  Receive Date: 20160202
  Receipt Date: 20160202
  Transmission Date: 20160526
  Serious: Yes (Other)
  Sender: FDA-Public Use
  Company Number: US-PFIZER INC-2016044843

PATIENT
  Age: 79 Year
  Sex: Female
  Weight: 59 kg

DRUGS (4)
  1. ROBITUSSIN LINGERING COLD LONG-ACTING COUGH GELS [Suspect]
     Active Substance: DEXTROMETHORPHAN HYDROBROMIDE
     Indication: NASOPHARYNGITIS
  2. ROBITUSSIN LINGERING COLD LONG-ACTING COUGH GELS [Suspect]
     Active Substance: DEXTROMETHORPHAN HYDROBROMIDE
     Indication: SECRETION DISCHARGE
  3. ROBITUSSIN LINGERING COLD LONG-ACTING COUGH GELS [Suspect]
     Active Substance: DEXTROMETHORPHAN HYDROBROMIDE
     Indication: COUGH
     Dosage: UNK
     Dates: start: 20160116, end: 20160116
  4. ROBITUSSIN LINGERING COLD LONG-ACTING COUGH GELS [Suspect]
     Active Substance: DEXTROMETHORPHAN HYDROBROMIDE
     Indication: LOWER RESPIRATORY TRACT INFECTION

REACTIONS (6)
  - Dysphagia [Unknown]
  - Choking [Unknown]
  - Foreign body [Unknown]
  - Product size issue [Unknown]
  - Dyspnoea [Unknown]
  - Product difficult to swallow [Unknown]
